FAERS Safety Report 7784258-7 (Version None)
Quarter: 2011Q3

REPORT INFORMATION
  Report Type: 
  Country: None (occurrence: None)
  Receive Date: 20110926
  Receipt Date: 20110919
  Transmission Date: 20111222
  Serious: Yes (Hospitalization, Other)
  Sender: FDA-Public Use
  Company Number: NSR_00270_2011

PATIENT
  Age: 32 Month
  Sex: Female

DRUGS (1)
  1. PROPRANOLOL [Suspect]
     Indication: HAEMANGIOMA
     Dosage: (4 MG/KG QD)

REACTIONS (5)
  - BLOOD PRESSURE DIASTOLIC DECREASED [None]
  - POOR QUALITY SLEEP [None]
  - NAUSEA [None]
  - HYPOGLYCAEMIA [None]
  - ALTERED STATE OF CONSCIOUSNESS [None]
